FAERS Safety Report 4466974-8 (Version None)
Quarter: 2004Q4

REPORT INFORMATION
  Report Type: 
  Country: None (occurrence: None)
  Receive Date: 20041006
  Receipt Date: 20031203
  Transmission Date: 20050328
  Serious: Yes (Other)
  Sender: FDA-Public Use
  Company Number: 200311448JP

PATIENT
  Age: 27 Year
  Sex: Female

DRUGS (7)
  1. ARAVA [Suspect]
     Indication: RHEUMATOID ARTHRITIS
     Route: 048
     Dates: start: 20031115, end: 20031128
  2. LOXONIN [Concomitant]
     Indication: RHEUMATOID ARTHRITIS
     Route: 048
  3. GLAKAY [Concomitant]
     Indication: OSTEOPOROSIS
     Route: 048
  4. MARZULENE S [Concomitant]
     Indication: GASTRITIS
     Route: 048
  5. FEROMIA [Concomitant]
     Indication: ANAEMIA
     Route: 048
     Dates: start: 20030718
  6. BREDININ [Concomitant]
     Indication: RHEUMATOID ARTHRITIS
     Route: 048
     Dates: end: 20031114
  7. RHEUMATREX [Concomitant]
     Indication: RHEUMATOID ARTHRITIS
     Dosage: DOSE: 6MG/WEEK
     Route: 048
     Dates: end: 20031108

REACTIONS (16)
  - ALANINE AMINOTRANSFERASE INCREASED [None]
  - ASPARTATE AMINOTRANSFERASE INCREASED [None]
  - BLOOD ALKALINE PHOSPHATASE INCREASED [None]
  - BLOOD LACTATE DEHYDROGENASE INCREASED [None]
  - GAMMA-GLUTAMYLTRANSFERASE INCREASED [None]
  - HAEMOGLOBIN DECREASED [None]
  - LIVER DISORDER [None]
  - LYMPHOCYTE PERCENTAGE DECREASED [None]
  - PLATELET COUNT DECREASED [None]
  - PRURITUS [None]
  - PYREXIA [None]
  - RASH [None]
  - RASH PAPULAR [None]
  - RED BLOOD CELL COUNT DECREASED [None]
  - VIRAL INFECTION [None]
  - WHITE BLOOD CELL COUNT DECREASED [None]
